FAERS Safety Report 6222158-4 (Version None)
Quarter: 2009Q2

REPORT INFORMATION
  Report Type: 
  Country: None (occurrence: None)
  Receive Date: 20090611
  Receipt Date: 20090602
  Transmission Date: 20091009
  Serious: Yes (Hospitalization)
  Sender: FDA-Public Use
  Company Number: FR-ROCHE-636004

PATIENT
  Age: 50 Year
  Sex: Male

DRUGS (2)
  1. PEGASYS [Suspect]
     Dosage: DOSAGE REPORTED: 1 DOSE DAILY (QD)
     Route: 058
     Dates: start: 20061110, end: 20061110
  2. RIBAVIRIN [Suspect]
     Dosage: DRUG REPORTED: RIBAVIRINE, DOSAGE REPORTED: 2 DOSES BID
     Route: 048
     Dates: start: 20061110, end: 20061113

REACTIONS (2)
  - RENAL FAILURE ACUTE [None]
  - RHABDOMYOLYSIS [None]
